FAERS Safety Report 4539310-6 (Version None)
Quarter: 2004Q4

REPORT INFORMATION
  Report Type: 
  Country: None (occurrence: None)
  Receive Date: 20041222
  Receipt Date: 20041208
  Transmission Date: 20050328
  Serious: Yes (Disabling)
  Sender: FDA-Public Use
  Company Number: 2004112707

PATIENT
  Age: 35 Year
  Sex: Male
  Weight: 88 kg

DRUGS (1)
  1. BEXTRA [Suspect]
     Indication: ARTHROPATHY
     Dosage: 40 GM (20 MG, BID), ORAL
     Route: 048
     Dates: start: 20030922, end: 20030930

REACTIONS (7)
  - ARTHROPATHY [None]
  - BLOOD HOMOCYSTEINE INCREASED [None]
  - CEREBRAL ISCHAEMIA [None]
  - FACIAL PALSY [None]
  - HEADACHE [None]
  - HYPERCHOLESTEROLAEMIA [None]
  - LACUNAR INFARCTION [None]
